FAERS Safety Report 5281672-9 (Version None)
Quarter: 2007Q1

REPORT INFORMATION
  Report Type: 
  Country: None (occurrence: None)
  Receive Date: 20070326
  Receipt Date: 20070312
  Transmission Date: 20070707
  Serious: Yes (Hospitalization)
  Sender: FDA-Public Use
  Company Number: 2007PV000009

PATIENT
  Age: 53 Year
  Sex: Female

DRUGS (4)
  1. DEPOCYT [Suspect]
     Indication: ACUTE LYMPHOCYTIC LEUKAEMIA RECURRENT
     Dosage: 50 MG;INTH
     Route: 037
     Dates: end: 20070227
  2. TORSEMIDE [Concomitant]
  3. LEVOTHYROXINE SODIUM [Concomitant]
  4. LYRICA [Concomitant]

REACTIONS (3)
  - BRAIN OEDEMA [None]
  - MUSCULAR WEAKNESS [None]
  - PROCTALGIA [None]
